FAERS Safety Report 7387616-8 (Version None)
Quarter: 2011Q1

REPORT INFORMATION
  Report Type: 
  Country: None (occurrence: None)
  Receive Date: 20110331
  Receipt Date: 20110329
  Transmission Date: 20110831
  Serious: Yes (Other)
  Sender: FDA-Public Use
  Company Number: US-PFIZER INC-2011069552

PATIENT
  Age: 90 Year
  Sex: Male

DRUGS (6)
  1. VINBLASTINE [Suspect]
     Indication: HODGKIN'S DISEASE
  2. DACARBAZINE [Suspect]
     Indication: HODGKIN'S DISEASE
  3. CYCLOPHOSPHAMIDE [Suspect]
     Indication: HODGKIN'S DISEASE
  4. PREDNISONE [Suspect]
     Indication: HODGKIN'S DISEASE
  5. PROCARBAZINE [Suspect]
     Indication: HODGKIN'S DISEASE
  6. DOXORUBICIN HCL [Suspect]
     Indication: HODGKIN'S DISEASE

REACTIONS (1)
  - HYPOCALCAEMIA [None]
